FAERS Safety Report 9235422 (Version 2)
Quarter: 2013Q2

REPORT INFORMATION
  Report Type: Spontaneous
  Country: JP (occurrence: JP)
  Receive Date: 20130417
  Receipt Date: 20130502
  Transmission Date: 20140414
  Serious: No
  Sender: FDA-Public Use
  Company Number: JP-009507513-1304JPN007327

PATIENT
  Age: 78 Year
  Sex: Male

DRUGS (3)
  1. GASTER [Suspect]
     Indication: STRESS ULCER
     Dosage: 40 MG, DAILY
     Route: 042
     Dates: start: 20130403, end: 20130409
  2. GASTER [Suspect]
     Dosage: 20 MG, DAILY
     Route: 048
     Dates: start: 20130409
  3. ZYVOX [Suspect]

REACTIONS (1)
  - Liver function test abnormal [Recovered/Resolved]
